FAERS Safety Report 5179592-3 (Version None)
Quarter: 2006Q4

REPORT INFORMATION
  Report Type: 
  Country: None (occurrence: None)
  Receive Date: 20061211
  Receipt Date: 20061127
  Transmission Date: 20070319
  Serious: Yes (Other)
  Sender: FDA-Public Use
  Company Number: 2006146827

PATIENT
  Age: 51 Year
  Sex: Male

DRUGS (2)
  1. LYRICA [Suspect]
     Indication: NEUROPATHY PERIPHERAL
     Dosage: 75 MG (75 MG, 1 IN 1 D), ORAL
     Route: 048
     Dates: start: 20061122
  2. ALCOHOL (ETHANOL) [Concomitant]

REACTIONS (5)
  - ACCIDENT [None]
  - ALCOHOL USE [None]
  - BALANCE DISORDER [None]
  - FALL [None]
  - LOSS OF CONSCIOUSNESS [None]
